FAERS Safety Report 4309677-2 (Version None)
Quarter: 2004Q1

REPORT INFORMATION
  Report Type: 
  Country: None (occurrence: None)
  Receive Date: 20040301
  Receipt Date: 20040223
  Transmission Date: 20041129
  Serious: Yes (Hospitalization)
  Sender: FDA-Public Use
  Company Number: 200402536

PATIENT
  Age: 16 Year
  Sex: Female

DRUGS (1)
  1. PARACETAMOL PRODUCT (PARACETAMOL) [Suspect]
     Dosage: 20 G ONCE PO
     Route: 048

REACTIONS (5)
  - BLOOD PHOSPHORUS DECREASED [None]
  - BRONCHITIS [None]
  - CYTOLYTIC HEPATITIS [None]
  - GASTROINTESTINAL DISORDER [None]
  - THROMBOCYTOPENIA [None]
